FAERS Safety Report 4462506-9 (Version None)
Quarter: 2004Q3

REPORT INFORMATION
  Report Type: 
  Country: None (occurrence: None)
  Receive Date: 20040924
  Receipt Date: 20040915
  Transmission Date: 20050211
  Serious: Yes (Hospitalization)
  Sender: FDA-Public Use
  Company Number: 2004SE05135

PATIENT
  Age: 66 Year
  Sex: Female

DRUGS (3)
  1. BLOPRESS [Suspect]
     Indication: HYPERTENSION
     Dosage: 8 MG PO
     Route: 048
     Dates: start: 20040715, end: 20040801
  2. NORVASC [Suspect]
     Dosage: 5 MG PO
     Route: 048
  3. LIPITOR [Suspect]
     Dosage: 10 MG PO
     Route: 048

REACTIONS (1)
  - SWELLING [None]
